FAERS Safety Report 10751771 (Version 2)
Quarter: 2015Q1

REPORT INFORMATION
  Report Type: Spontaneous
  Country: US (occurrence: US)
  Receive Date: 20150130
  Receipt Date: 20150330
  Transmission Date: 20150721
  Serious: Yes (Hospitalization)
  Sender: FDA-Public Use
  Company Number: US-BAXTER-2015BAX002383

PATIENT
  Sex: Male

DRUGS (2)
  1. DIANEAL LOW CALCIUM PERITONEAL DIALYSIS SOLUTION WITH DEXTROSE [Suspect]
     Active Substance: CALCIUM CHLORIDE\DEXTROSE\MAGNESIUM CHLORIDE\SODIUM CHLORIDE\SODIUM LACTATE
     Indication: CHRONIC KIDNEY DISEASE
     Dosage: 3 LITERS BAGS
     Route: 033
     Dates: start: 201205
  2. AMANTADINE [Suspect]
     Active Substance: AMANTADINE
     Indication: COUGH
     Route: 048
     Dates: start: 20150301, end: 20150302

REACTIONS (5)
  - Adverse drug reaction [Recovered/Resolved]
  - Bronchitis [Recovered/Resolved]
  - Tremor [Recovered/Resolved]
  - Dehydration [Recovered/Resolved]
  - Paranoia [Recovered/Resolved]

NARRATIVE: CASE EVENT DATE: 201412
